FAERS Safety Report 20848070 (Version 1)
Quarter: 2022Q2

REPORT INFORMATION
  Report Type: Spontaneous
  Country: US (occurrence: US)
  Receive Date: 20220519
  Receipt Date: 20220519
  Transmission Date: 20220721
  Serious: No
  Sender: FDA-Public Use
  Company Number: US-BIOGEN-2022BI01116937

PATIENT
  Sex: Female
  Weight: 76.2 kg

DRUGS (1)
  1. TECFIDERA [Suspect]
     Active Substance: DIMETHYL FUMARATE
     Indication: Product used for unknown indication
     Route: 065

REACTIONS (15)
  - Retinal disorder [Unknown]
  - Epiretinal membrane [Unknown]
  - Pain in jaw [Unknown]
  - Intervertebral disc protrusion [Unknown]
  - Gastroenteritis viral [Unknown]
  - Skin warm [Unknown]
  - Memory impairment [Unknown]
  - Malaise [Unknown]
  - Insomnia [Unknown]
  - Head discomfort [Unknown]
  - Muscle spasms [Unknown]
  - Condition aggravated [Unknown]
  - Vitamin D decreased [Unknown]
  - Dyspepsia [Unknown]
  - Gastrointestinal disorder [Unknown]
